FAERS Safety Report 8159054 (Version 2)
Quarter: 2015Q1

REPORT INFORMATION
  Report Type: Spontaneous
  Country: US (occurrence: US)
  Receive Date: 20110927
  Receipt Date: 20150317
  Transmission Date: 20150721
  Serious: Yes (Congenital Anomaly)
  Sender: FDA-Public Use
  Company Number: US-ELI_LILLY_AND_COMPANY-US201109004210

PATIENT

DRUGS (4)
  1. ACYCLOVIR                          /00587301/ [Concomitant]
     Active Substance: ACYCLOVIR
     Route: 064
  2. FAMVIR [Concomitant]
     Active Substance: FAMCICLOVIR
     Route: 064
  3. PRENAT                             /00023601/ [Concomitant]
     Route: 064
  4. PROZAC [Suspect]
     Active Substance: FLUOXETINE HYDROCHLORIDE
     Indication: DEPRESSION
     Dosage: 20 MG, UNKNOWN
     Route: 064
     Dates: start: 19941129

REACTIONS (8)
  - Oral cavity fistula [Unknown]
  - Phonological disorder [Unknown]
  - Cleft lip and palate [Unknown]
  - Cleft lip [Unknown]
  - Pain in jaw [Unknown]
  - Dental alveolar anomaly [Unknown]
  - Premature baby [Recovered/Resolved]
  - Exposure during pregnancy [Recovered/Resolved]
